FAERS Safety Report 24036983 (Version 2)
Quarter: 2024Q3

REPORT INFORMATION
  Report Type: Spontaneous
  Country: JP (occurrence: JP)
  Receive Date: 20240701
  Receipt Date: 20240725
  Transmission Date: 20241017
  Serious: Yes (Hospitalization)
  Sender: NEUROCRINE BIOSCIENCES
  Company Number: JP-NEUROCRINE BIOSCIENCES INC.-2024NBI06403

PATIENT
  Age: 73 Year
  Sex: Female

DRUGS (17)
  1. VALBENAZINE [Suspect]
     Active Substance: VALBENAZINE
     Indication: Dyskinesia
     Dosage: 40 MILLIGRAM, QOD
     Route: 048
  2. VALBENAZINE [Suspect]
     Active Substance: VALBENAZINE
     Dosage: 20 MILLIGRAM, QD
     Route: 048
  3. VALBENAZINE [Suspect]
     Active Substance: VALBENAZINE
     Dosage: 40 MILLIGRAM, QD
     Route: 048
  4. CLOTIAZEPAM [Suspect]
     Active Substance: CLOTIAZEPAM
     Indication: Hypoaesthesia
     Dosage: UNK
     Route: 048
  5. CLOTIAZEPAM [Suspect]
     Active Substance: CLOTIAZEPAM
     Indication: Abdominal pain
  6. IMIPRAMINE HYDROCHLORIDE [Suspect]
     Active Substance: IMIPRAMINE HYDROCHLORIDE
     Indication: Product used for unknown indication
     Dosage: 10 MILLIGRAM, QD
     Route: 048
  7. IMIPRAMINE HYDROCHLORIDE [Suspect]
     Active Substance: IMIPRAMINE HYDROCHLORIDE
     Dosage: 20 MILLIGRAM, QD
     Route: 048
  8. LEXAPRO [Suspect]
     Active Substance: ESCITALOPRAM OXALATE
     Indication: Depression
     Dosage: 10 MILLIGRAM, QD
     Route: 048
  9. LEXAPRO [Suspect]
     Active Substance: ESCITALOPRAM OXALATE
     Dosage: 20 MILLIGRAM, QD
     Route: 048
  10. BROTIZOLAM [Concomitant]
     Active Substance: BROTIZOLAM
  11. OLANZAPINE [Concomitant]
     Active Substance: OLANZAPINE
  12. VITAMIN E [Concomitant]
     Active Substance: .ALPHA.-TOCOPHEROL
  13. BETHANECHOL CHLORIDE [Concomitant]
     Active Substance: BETHANECHOL CHLORIDE
  14. NEOSTIGMINE BROMIDE [Concomitant]
     Active Substance: NEOSTIGMINE BROMIDE
  15. VALPROATE SODIUM [Concomitant]
     Active Substance: VALPROATE SODIUM
  16. DIAZEPAM [Concomitant]
     Active Substance: DIAZEPAM
  17. SULPIRIDE [Concomitant]
     Active Substance: SULPIRIDE

REACTIONS (9)
  - Decreased appetite [Recovered/Resolved]
  - Abdominal pain [Recovered/Resolved]
  - Thirst [Unknown]
  - Weight decreased [Unknown]
  - Abulia [Unknown]
  - Dyskinesia [Recovered/Resolved]
  - Dizziness [Unknown]
  - Off label use [Unknown]
  - Off label use [Unknown]
